FAERS Safety Report 6156652-1 (Version None)
Quarter: 2009Q2

REPORT INFORMATION
  Report Type: 
  Country: None (occurrence: None)
  Receive Date: 20090413
  Receipt Date: 20090331
  Transmission Date: 20091009
  Serious: Yes (Hospitalization)
  Sender: FDA-Public Use
  Company Number: 8044448

PATIENT
  Age: 54 Year
  Sex: Female
  Weight: 68 kg

DRUGS (5)
  1. KEPPRA [Suspect]
     Indication: CONVULSION
     Dosage: 2000 MG 2/D PO
     Route: 048
     Dates: start: 20030301, end: 20080101
  2. KEPPRA [Suspect]
     Indication: CONVULSION
     Dosage: 500 MG 2/D PO
     Route: 048
     Dates: start: 20080101
  3. TEGRETOL [Concomitant]
  4. FOLIC ACID [Concomitant]
  5. LEXAPRO [Concomitant]

REACTIONS (2)
  - BRAIN NEOPLASM [None]
  - FREQUENT BOWEL MOVEMENTS [None]
